FAERS Safety Report 23636034 (Version 1)
Quarter: 2024Q1

REPORT INFORMATION
  Report Type: Spontaneous
  Country: IT (occurrence: IT)
  Receive Date: 20240315
  Receipt Date: 20240315
  Transmission Date: 20240409
  Serious: Yes (Other)
  Sender: FDA-Public Use
  Company Number: IT-GERMAN-LIT/ITA/24/0004276

PATIENT
  Age: 84 Year
  Sex: Female

DRUGS (2)
  1. LENALIDOMIDE [Suspect]
     Active Substance: LENALIDOMIDE
     Indication: Diffuse large B-cell lymphoma
     Dosage: 15 MG/DAY FOR 21 DAYS IN A 28-DAY CYCLE
     Dates: start: 20210324
  2. LENALIDOMIDE [Suspect]
     Active Substance: LENALIDOMIDE
     Dosage: STARTING FROM CYCLE 20

REACTIONS (2)
  - Neutropenia [Recovered/Resolved]
  - Lentigo [Recovered/Resolved]
